FAERS Safety Report 10528649 (Version 1)
Quarter: 2014Q4

REPORT INFORMATION
  Report Type: Spontaneous
  Country: US (occurrence: None)
  Receive Date: 20141016
  Receipt Date: 20141016
  Transmission Date: 20150528
  Serious: Yes (Hospitalization)
  Sender: FDA-Public Use
  Company Number: None

PATIENT
  Age: 59 Year
  Sex: Male
  Weight: 141 kg

DRUGS (2)
  1. ENALAPRIL [Suspect]
     Active Substance: ENALAPRIL
     Indication: HYPERTENSION
     Route: 048
     Dates: start: 20140522, end: 20140623
  2. ENALAPRIL [Suspect]
     Active Substance: ENALAPRIL
     Indication: DIABETES MELLITUS
     Route: 048
     Dates: start: 20140522, end: 20140623

REACTIONS (3)
  - Blood urea increased [None]
  - Blood creatinine increased [None]
  - Hyperkalaemia [None]

NARRATIVE: CASE EVENT DATE: 20140623
